FAERS Safety Report 14156702 (Version 3)
Quarter: 2018Q2

REPORT INFORMATION
  Report Type: Spontaneous
  Country: FR (occurrence: FR)
  Receive Date: 20171103
  Receipt Date: 20180614
  Transmission Date: 20180711
  Serious: Yes (Hospitalization)
  Sender: FDA-Public Use
  Company Number: FR-EISAI MEDICAL RESEARCH-EC-2017-032600

PATIENT
  Age: 81 Year
  Sex: Female

DRUGS (7)
  1. CORDARONE [Concomitant]
     Active Substance: AMIODARONE HYDROCHLORIDE
     Indication: ARRHYTHMIA
     Route: 048
  2. STALEVO [Suspect]
     Active Substance: CARBIDOPA\ENTACAPONE\LEVODOPA
     Indication: PARKINSON^S DISEASE
     Dosage: 1 DOSAGE FORM (100 MG/25 MG/200 MG) ONCE DAILY; 1 DOSAGE FORM (75 MG/18.75MG/200 MG) THREE TIMES DAI
     Route: 048
  3. ISOPTINE PR [Concomitant]
     Indication: ARRHYTHMIA
     Route: 048
  4. KALEORIDE PR [Concomitant]
     Indication: HYPOKALAEMIA
     Route: 048
  5. ARICEPT [Suspect]
     Active Substance: DONEPEZIL HYDROCHLORIDE
     Indication: COGNITIVE DISORDER
     Route: 048
     Dates: start: 20170925, end: 20170930
  6. LYRICA [Suspect]
     Active Substance: PREGABALIN
     Indication: NEURALGIA
     Route: 048
     Dates: end: 20171016
  7. FUROSEMIDE. [Concomitant]
     Active Substance: FUROSEMIDE
     Indication: OEDEMA PERIPHERAL
     Dosage: 40 MG IN MORNING AND 20 MG AT NOON
     Route: 048

REACTIONS (4)
  - Confusional state [Recovering/Resolving]
  - Hallucination [Recovered/Resolved]
  - Disorientation [Recovered/Resolved]
  - Chills [Recovered/Resolved]

NARRATIVE: CASE EVENT DATE: 20170926
